FAERS Safety Report 9609721 (Version 1)
Quarter: 2013Q4

REPORT INFORMATION
  Report Type: Spontaneous
  Country: US (occurrence: US)
  Receive Date: 20131009
  Receipt Date: 20131009
  Transmission Date: 20140711
  Serious: No
  Sender: FDA-Public Use
  Company Number: US-PURDUE-USA-2012-0095733

PATIENT
  Sex: Female

DRUGS (6)
  1. BUTRANS [Suspect]
     Indication: FIBROMYALGIA
     Dosage: 10 MCG, Q1H
     Route: 062
     Dates: start: 2011, end: 20121108
  2. BUTRANS [Suspect]
     Indication: OSTEOARTHRITIS
  3. BUTRANS [Suspect]
     Indication: PAIN
  4. TOPAMAX [Concomitant]
     Indication: PAIN MANAGEMENT
     Dosage: 100 MG, BID
     Route: 048
  5. WELLBUTRIN XL [Concomitant]
     Indication: DEPRESSION
     Dosage: 450 MG, DAILY
     Route: 048
  6. KLONOPIN [Concomitant]
     Indication: ANXIETY
     Dosage: 0.5 MG, PRN
     Route: 048

REACTIONS (7)
  - Slow speech [Not Recovered/Not Resolved]
  - Dysphonia [Not Recovered/Not Resolved]
  - Hypokinesia [Not Recovered/Not Resolved]
  - Fall [Not Recovered/Not Resolved]
  - Dizziness [Not Recovered/Not Resolved]
  - Pain [Not Recovered/Not Resolved]
  - Nausea [Not Recovered/Not Resolved]
